FAERS Safety Report 16608189 (Version 1)
Quarter: 2019Q3

REPORT INFORMATION
  Report Type: Spontaneous
  Country: FR (occurrence: FR)
  Receive Date: 20190722
  Receipt Date: 20190722
  Transmission Date: 20191004
  Serious: Yes (Hospitalization, Other)
  Sender: FDA-Public Use
  Company Number: FR-PFIZER INC-2019304346

PATIENT
  Age: 53 Year
  Sex: Female

DRUGS (4)
  1. PAROXETINE. [Suspect]
     Active Substance: PAROXETINE
     Dosage: SINGLE
     Route: 048
     Dates: start: 20170729, end: 20170729
  2. ALPRAZOLAM. [Suspect]
     Active Substance: ALPRAZOLAM
     Dosage: SINGLE
     Route: 048
     Dates: start: 20170729, end: 20170729
  3. HAVLANE [Suspect]
     Active Substance: LOPRAZOLAM
     Dosage: SINGLE
     Route: 048
     Dates: start: 20170729, end: 20170729
  4. PREDNISOLONE. [Suspect]
     Active Substance: PREDNISOLONE
     Dosage: SINGLE
     Route: 048
     Dates: start: 20170729, end: 20170729

REACTIONS (3)
  - Coma [Recovered/Resolved]
  - Suicide attempt [Unknown]
  - Toxicity to various agents [Recovered/Resolved]

NARRATIVE: CASE EVENT DATE: 20170729
